FAERS Safety Report 12646743 (Version 1)
Quarter: 2016Q3

REPORT INFORMATION
  Report Type: Report from Study
  Country: GB (occurrence: GB)
  Receive Date: 20160812
  Receipt Date: 20160812
  Transmission Date: 20161109
  Serious: Yes (Other)
  Sender: FDA-Public Use
  Company Number: GB-ROCHE-1810888

PATIENT
  Sex: Female

DRUGS (2)
  1. AUY922 (HSP90 INHIBITOR) [Suspect]
     Active Substance: LUMINESPIB
     Indication: HER-2 POSITIVE BREAST CANCER
     Route: 042
  2. TRASTUZUMAB [Suspect]
     Active Substance: TRASTUZUMAB
     Indication: HER-2 POSITIVE BREAST CANCER
     Route: 042

REACTIONS (2)
  - Cardiac failure [Unknown]
  - Bundle branch block left [Unknown]
